FAERS Safety Report 6723293-4 (Version None)
Quarter: 2010Q2

REPORT INFORMATION
  Report Type: 
  Country: None (occurrence: None)
  Receive Date: 20100513
  Receipt Date: 20100504
  Transmission Date: 20101027
  Serious: Yes (Other)
  Sender: FDA-Public Use
  Company Number: US-JNJFOC-20100302295

PATIENT
  Age: 30 Year
  Sex: Female
  Weight: 72.58 kg

DRUGS (5)
  1. REMICADE [Suspect]
     Indication: CROHN'S DISEASE
     Route: 042
  2. REMICADE [Suspect]
     Route: 042
  3. REMICADE [Suspect]
     Route: 042
  4. ENTOCORT EC [Concomitant]
     Indication: CROHN'S DISEASE
  5. CANASA [Concomitant]
     Indication: CROHN'S DISEASE

REACTIONS (1)
  - INTERSTITIAL GRANULOMATOUS DERMATITIS [None]
